FAERS Safety Report 5032767-6 (Version None)
Quarter: 2006Q2

REPORT INFORMATION
  Report Type: 
  Country: None (occurrence: None)
  Receive Date: 20060622
  Receipt Date: 20060427
  Transmission Date: 20061013
  Serious: Yes (Hospitalization)
  Sender: FDA-Public Use
  Company Number: FR-MERCK-0605FRA00018

PATIENT
  Age: 75 Year
  Sex: Male

DRUGS (2)
  1. VYTORIN [Suspect]
     Indication: HYPERCHOLESTEROLAEMIA
     Route: 048
     Dates: start: 20060409, end: 20060420
  2. ZOCOR [Concomitant]
     Indication: HYPERCHOLESTEROLAEMIA
     Route: 048
     Dates: start: 20020101, end: 20060408

REACTIONS (5)
  - ASTHENIA [None]
  - DECREASED APPETITE [None]
  - HYPERSOMNIA [None]
  - LYMPHOMA [None]
  - PAIN [None]
